FAERS Safety Report 4832121-3 (Version None)
Quarter: 2005Q4

REPORT INFORMATION
  Report Type: 
  Country: None (occurrence: None)
  Receive Date: 20051118
  Receipt Date: 20050810
  Transmission Date: 20060501
  Serious: Yes (Hospitalization)
  Sender: FDA-Public Use
  Company Number: US-MERCK-0508USA01982

PATIENT
  Age: 53 Year
  Sex: Female
  Weight: 61 kg

DRUGS (10)
  1. VIOXX [Suspect]
     Indication: ARTHRITIS
     Route: 048
     Dates: start: 20010101, end: 20040901
  2. VIOXX [Suspect]
     Indication: ARTHRALGIA
     Route: 048
     Dates: start: 20010101, end: 20040901
  3. EFFEXOR [Concomitant]
     Indication: ANXIETY
     Route: 065
     Dates: start: 19990801
  4. EFFEXOR [Concomitant]
     Indication: DEPRESSION
     Route: 065
     Dates: start: 19990801
  5. XANAX [Concomitant]
     Indication: ANXIETY
     Route: 065
     Dates: start: 19990801
  6. XANAX [Concomitant]
     Indication: DEPRESSION
     Route: 065
     Dates: start: 19990801
  7. OXYCODONE AND ACETAMINOPHEN [Concomitant]
     Indication: PAIN MANAGEMENT
     Route: 065
     Dates: start: 19970101
  8. ADVIL [Concomitant]
     Route: 065
  9. TYLENOL (CAPLET) [Concomitant]
     Route: 065
  10. TYLENOL (CAPLET) [Concomitant]
     Route: 065

REACTIONS (17)
  - ABDOMINAL PAIN UPPER [None]
  - ANEURYSM [None]
  - BLOOD CHOLESTEROL INCREASED [None]
  - CEREBROVASCULAR ACCIDENT [None]
  - CHEST PAIN [None]
  - DEHYDRATION [None]
  - DIZZINESS [None]
  - DYSPNOEA [None]
  - FIBROMYALGIA [None]
  - HEADACHE [None]
  - JOINT SWELLING [None]
  - LACUNAR INFARCTION [None]
  - LOW DENSITY LIPOPROTEIN INCREASED [None]
  - MUSCLE SPASMS [None]
  - SEASONAL ALLERGY [None]
  - TINNITUS [None]
  - URINARY INCONTINENCE [None]
